FAERS Safety Report 8282834-9 (Version None)
Quarter: 2012Q2

REPORT INFORMATION
  Report Type: 
  Country: None (occurrence: None)
  Receive Date: 20120413
  Receipt Date: 20120402
  Transmission Date: 20120825
  Serious: Yes (Other)
  Sender: FDA-Public Use
  Company Number: JP-VERTEX PHARMACEUTICALS INC.-AE-2012-004843

PATIENT
  Sex: Female

DRUGS (19)
  1. TELAVIC (TELAPREVIR) [Suspect]
     Dates: start: 20120123, end: 20120125
  2. REBETOL [Concomitant]
     Indication: HEPATITIS C
     Dates: start: 20111228, end: 20120105
  3. PEG-INTRON [Concomitant]
     Dates: start: 20120301
  4. PEG-INTRON [Concomitant]
     Dates: start: 20120126, end: 20120216
  5. TELAVIC (TELAPREVIR) [Suspect]
     Dates: start: 20120301
  6. NORVASC [Concomitant]
  7. REBETOL [Concomitant]
     Dates: start: 20120216
  8. REBETOL [Concomitant]
     Dates: start: 20120105, end: 20120112
  9. PEG-INTRON [Concomitant]
     Dates: start: 20120216, end: 20120301
  10. TELAVIC (TELAPREVIR) [Suspect]
     Indication: HEPATITIS C
     Route: 048
     Dates: start: 20111228, end: 20120104
  11. TELAVIC (TELAPREVIR) [Suspect]
     Dates: start: 20120105, end: 20120105
  12. TELAVIC (TELAPREVIR) [Suspect]
     Dates: start: 20120106, end: 20120116
  13. TELAVIC (TELAPREVIR) [Suspect]
     Dates: start: 20120216, end: 20120223
  14. TELAVIC (TELAPREVIR) [Suspect]
     Dates: start: 20120126, end: 20120216
  15. REBETOL [Concomitant]
     Dates: start: 20120112, end: 20120118
  16. PEG-INTRON [Concomitant]
     Indication: HEPATITIS C
     Route: 058
     Dates: start: 20111228, end: 20120117
  17. TELAVIC (TELAPREVIR) [Suspect]
     Dates: start: 20120116, end: 20120118
  18. TELAVIC (TELAPREVIR) [Suspect]
     Dates: start: 20120223, end: 20120301
  19. REBETOL [Concomitant]
     Dates: start: 20120123, end: 20120125

REACTIONS (1)
  - WHITE BLOOD CELL COUNT DECREASED [None]
